FAERS Safety Report 9633928 (Version 1)
Quarter: 2013Q4

REPORT INFORMATION
  Report Type: Spontaneous
  Country: NO (occurrence: NO)
  Receive Date: 20131021
  Receipt Date: 20131021
  Transmission Date: 20140711
  Serious: Yes (Hospitalization)
  Sender: FDA-Public Use
  Company Number: NO-JNJFOC-20131008098

PATIENT
  Age: 13 Year
  Sex: Female

DRUGS (3)
  1. CONCERTA [Suspect]
     Indication: NARCOLEPSY
     Route: 048
     Dates: end: 20131003
  2. ANAFRANIL [Concomitant]
     Route: 065
  3. OMEPRAZOLE [Concomitant]
     Route: 065

REACTIONS (6)
  - Dependent personality disorder [Not Recovered/Not Resolved]
  - Self injurious behaviour [Not Recovered/Not Resolved]
  - Suicidal ideation [Not Recovered/Not Resolved]
  - Depression [Not Recovered/Not Resolved]
  - Aggression [Not Recovered/Not Resolved]
  - Off label use [Unknown]
